FAERS Safety Report 7318394-6 (Version None)
Quarter: 2011Q1

REPORT INFORMATION
  Report Type: 
  Country: None (occurrence: None)
  Receive Date: 20110218
  Receipt Date: 20110218
  Transmission Date: 20110831
  Serious: No
  Sender: FDA-Public Use
  Company Number: None

PATIENT
  Sex: Female
  Weight: 91.2 kg

DRUGS (4)
  1. CYCLOPHOSPHAMIDE [Suspect]
     Dosage: 1240 MG
     Dates: end: 20080606
  2. NEULASTA [Suspect]
     Dosage: 6 MG
     Dates: end: 20080607
  3. DOXORUBICIN HCL [Suspect]
     Dosage: 124 MG
     Dates: end: 20080606
  4. TAXOL [Suspect]
     Dosage: 168 MG
     Dates: end: 20080828

REACTIONS (1)
  - TRANSITIONAL CELL CARCINOMA [None]
